FAERS Safety Report 20942231 (Version 1)
Quarter: 2022Q2

REPORT INFORMATION
  Report Type: Other
  Country: GB (occurrence: GB)
  Receive Date: 20220610
  Receipt Date: 20220610
  Transmission Date: 20220721
  Serious: Yes (Other)
  Sender: FDA-Public Use
  Company Number: None

PATIENT
  Age: 56 Year
  Sex: Female
  Weight: 63 kg

DRUGS (9)
  1. METRONIDAZOLE [Suspect]
     Active Substance: METRONIDAZOLE
     Indication: Diverticulitis
     Dosage: 400 MILLIGRAM, TID
     Route: 065
     Dates: start: 20220509, end: 20220512
  2. CEPHALEXIN [Suspect]
     Active Substance: CEPHALEXIN
     Indication: Diverticulitis
     Dosage: 500 MILLIGRAM, TID
     Route: 065
     Dates: start: 20220509, end: 20220512
  3. LANSOPRAZOLE [Concomitant]
     Active Substance: LANSOPRAZOLE
     Indication: Hiatus hernia
     Dosage: UNK
     Route: 065
  4. ALLOPURINOL [Concomitant]
     Active Substance: ALLOPURINOL
     Indication: Gout
     Dosage: UNK
     Route: 065
  5. CYCLIZINE [Concomitant]
     Active Substance: CYCLIZINE
     Indication: Prophylaxis of nausea and vomiting
     Dosage: UNK
     Route: 065
     Dates: start: 20220509, end: 20220513
  6. ESTRADIOL HEMIHYDRATE\LEVONORGESTREL [Concomitant]
     Active Substance: ESTRADIOL HEMIHYDRATE\LEVONORGESTREL
     Indication: Menopause
     Dosage: UNK
     Route: 065
  7. FYBOGEL [Concomitant]
     Active Substance: HERBALS\PLANTAGO OVATA SEED
     Indication: Diverticulitis
     Dosage: UNK
     Route: 065
  8. SCOPOLAMINE [Concomitant]
     Active Substance: SCOPOLAMINE
     Indication: Gastrointestinal pain
     Dosage: UNK
     Route: 065
  9. POLYETHYLENE GLYCOL 3350\POTASSIUM CHLORIDE\SODIUM BICARBONATE\SODIUM [Concomitant]
     Active Substance: POLYETHYLENE GLYCOL 3350\POTASSIUM CHLORIDE\SODIUM BICARBONATE\SODIUM CHLORIDE
     Indication: Diverticulum
     Dosage: UNK
     Route: 065

REACTIONS (8)
  - Somnolence [Unknown]
  - Fatigue [Recovered/Resolved]
  - Condition aggravated [Unknown]
  - Pyrexia [Recovered/Resolved]
  - Rash [Recovered/Resolved]
  - Pain in extremity [Recovered/Resolved]
  - Confusional state [Recovered/Resolved]
  - Off label use [Unknown]

NARRATIVE: CASE EVENT DATE: 20220510
